FAERS Safety Report 4925394-X (Version None)
Quarter: 2006Q1

REPORT INFORMATION
  Report Type: 
  Country: None (occurrence: None)
  Receive Date: 20060228
  Receipt Date: 20050214
  Transmission Date: 20060701
  Serious: No
  Sender: FDA-Public Use
  Company Number: US-GLAXOSMITHKLINE-A0545450A

PATIENT
  Age: 10 Year
  Sex: Male

DRUGS (6)
  1. LAMICTAL [Suspect]
     Indication: BIPOLAR DISORDER
     Dosage: 25MG PER DAY
     Route: 048
     Dates: start: 20050203
  2. ZYRTEC [Concomitant]
  3. SINGULAIR [Concomitant]
  4. STRATTERA [Concomitant]
  5. GEODON [Concomitant]
  6. LEXAPRO [Concomitant]

REACTIONS (5)
  - ERYTHEMA [None]
  - LOCAL SWELLING [None]
  - PRURITUS [None]
  - PYREXIA [None]
  - RASH [None]
